FAERS Safety Report 11899712 (Version 1)
Quarter: 2016Q1

REPORT INFORMATION
  Report Type: Other
  Country: US (occurrence: US)
  Receive Date: 20160108
  Receipt Date: 20160108
  Transmission Date: 20160526
  Serious: Yes (Disabling, Other)
  Sender: FDA-Public Use
  Company Number: US-COL_21680_2015

PATIENT
  Age: 64 Year
  Sex: Female

DRUGS (2)
  1. COLGATE SENSITIVE MULTIPROTECTION [Suspect]
     Active Substance: POTASSIUM NITRATE\SODIUM FLUORIDE
     Indication: DENTAL DISORDER PROPHYLAXIS
     Dosage: LIMA BEAN SIZE/ BID/
     Route: 048
     Dates: start: 201512, end: 20151220
  2. VITAMINS NOS [Concomitant]
     Active Substance: VITAMINS
     Dosage: NI

REACTIONS (15)
  - Expired product administered [Recovered/Resolved]
  - Oral discomfort [Recovering/Resolving]
  - Oral mucosal exfoliation [Recovering/Resolving]
  - Chemical burn of gastrointestinal tract [Recovering/Resolving]
  - Oral mucosal blistering [Recovering/Resolving]
  - Pharyngeal erythema [Recovering/Resolving]
  - Lip haemorrhage [Recovering/Resolving]
  - Erythema [Recovering/Resolving]
  - Tongue discolouration [Recovering/Resolving]
  - Chapped lips [Recovering/Resolving]
  - Activities of daily living impaired [Recovering/Resolving]
  - Skin burning sensation [Recovering/Resolving]
  - Glossodynia [Recovering/Resolving]
  - Throat irritation [Recovering/Resolving]
  - Cheilitis [Recovering/Resolving]

NARRATIVE: CASE EVENT DATE: 201512
